FAERS Safety Report 5970907-2 (Version None)
Quarter: 2008Q4

REPORT INFORMATION
  Report Type: 
  Country: None (occurrence: None)
  Receive Date: 20081128
  Receipt Date: 20081118
  Transmission Date: 20090506
  Serious: Yes (Other)
  Sender: FDA-Public Use
  Company Number: PHEH2008US08874

PATIENT
  Sex: Female
  Weight: 61.7 kg

DRUGS (5)
  1. FEMARA [Suspect]
     Indication: BREAST CANCER
     Dosage: 2.5 MG, QD
     Route: 048
     Dates: start: 20080703, end: 20081022
  2. M.V.I. [Concomitant]
     Dosage: UNK
     Route: 048
  3. MELATONIN [Concomitant]
     Dosage: UNK
     Route: 048
  4. ACETYLSALICYLIC ACID SRT [Concomitant]
     Dosage: 81 MG, QD
     Route: 048
  5. VITAMIN E [Concomitant]
     Dosage: UNK
     Route: 048

REACTIONS (4)
  - HOT FLUSH [None]
  - HYPOAESTHESIA [None]
  - NEUROPATHY PERIPHERAL [None]
  - NIGHT SWEATS [None]
